FAERS Safety Report 21482859 (Version 2)
Quarter: 2022Q4

REPORT INFORMATION
  Report Type: Spontaneous
  Country: JP (occurrence: None)
  Receive Date: 20221020
  Receipt Date: 20221122
  Transmission Date: 20230113
  Serious: Yes (Other)
  Sender: FDA-Public Use
  Company Number: 2022A345156

PATIENT
  Age: 42 Year
  Sex: Female
  Weight: 32.3 kg

DRUGS (8)
  1. OSIMERTINIB [Suspect]
     Active Substance: OSIMERTINIB
     Indication: Lung adenocarcinoma stage IV
     Dosage: 80 MG
     Route: 048
     Dates: start: 202107, end: 202108
  2. OSIMERTINIB [Suspect]
     Active Substance: OSIMERTINIB
     Indication: EGFR gene mutation
     Dosage: 80 MG
     Route: 048
     Dates: start: 202107, end: 202108
  3. OSIMERTINIB [Suspect]
     Active Substance: OSIMERTINIB
     Indication: Lung adenocarcinoma stage IV
     Dosage: 40 MG, RESUMED ON DAY 53
     Route: 048
     Dates: start: 202108, end: 202109
  4. OSIMERTINIB [Suspect]
     Active Substance: OSIMERTINIB
     Indication: EGFR gene mutation
     Dosage: 40 MG, RESUMED ON DAY 53
     Route: 048
     Dates: start: 202108, end: 202109
  5. OSIMERTINIB [Suspect]
     Active Substance: OSIMERTINIB
     Indication: Lung adenocarcinoma stage IV
     Dosage: 80 MG
     Route: 048
     Dates: start: 202109, end: 202110
  6. OSIMERTINIB [Suspect]
     Active Substance: OSIMERTINIB
     Indication: EGFR gene mutation
     Dosage: 80 MG
     Route: 048
     Dates: start: 202109, end: 202110
  7. OSIMERTINIB [Suspect]
     Active Substance: OSIMERTINIB
     Indication: Lung adenocarcinoma stage IV
     Dosage: 40 MG
     Route: 048
     Dates: start: 202112
  8. OSIMERTINIB [Suspect]
     Active Substance: OSIMERTINIB
     Indication: EGFR gene mutation
     Dosage: 40 MG
     Route: 048
     Dates: start: 202112

REACTIONS (3)
  - Drug resistance [Unknown]
  - Pneumonitis [Unknown]
  - Leukopenia [Recovering/Resolving]

NARRATIVE: CASE EVENT DATE: 20210101
